FAERS Safety Report 12889444 (Version 1)
Quarter: 2016Q4

REPORT INFORMATION
  Report Type: Spontaneous
  Country: US (occurrence: US)
  Receive Date: 20161027
  Receipt Date: 20161027
  Transmission Date: 20170207
  Serious: Yes (Other)
  Sender: FDA-Public Use
  Company Number: US-GLAXOSMITHKLINE-US2016157476

PATIENT
  Age: 80 Year
  Sex: Female

DRUGS (1)
  1. EX-LAX REGULAR STRENGTH CHOCOLATED STIMULANT LAXATIVE [Suspect]
     Active Substance: SENNOSIDES
     Indication: CONSTIPATION
     Dosage: UNK
     Dates: end: 20161020

REACTIONS (4)
  - Nephrectomy [Unknown]
  - Inappropriate schedule of drug administration [Unknown]
  - Renal cancer [Unknown]
  - Renal failure [Unknown]
